FAERS Safety Report 8956993 (Version 1)
Quarter: 2012Q4

REPORT INFORMATION
  Report Type: Report from Study
  Country: PL (occurrence: PL)
  Receive Date: 20121210
  Receipt Date: 20121210
  Transmission Date: 20130627
  Serious: Yes (Hospitalization)
  Sender: FDA-Public Use
  Company Number: PL-ROCHE-1097853

PATIENT
  Age: 3 Year
  Sex: Male
  Weight: 14.4 kg

DRUGS (14)
  1. BEVACIZUMAB [Suspect]
     Indication: NEOPLASM MALIGNANT
     Dosage: last dose prior to SAE on 17/Oct/2012
     Route: 042
     Dates: start: 20121017
  2. IFOSFAMIDE [Suspect]
     Indication: NEOPLASM MALIGNANT
     Dosage: date of last dose prior to sae: 25/Jul/2012
     Route: 042
     Dates: start: 20120724
  3. IFOSFAMIDE [Suspect]
     Dosage: Last dose prior to Adverse event
     Route: 042
     Dates: start: 20120926
  4. IFOSFAMIDE [Suspect]
     Dosage: last dose prior to SAE on 18/Oct/2012
     Route: 042
     Dates: start: 20121017
  5. IFOSFAMIDE [Suspect]
     Dosage: 7th cycle, last dose prior to SAE on 28/Nov/2012
     Route: 042
     Dates: start: 20121127
  6. DOXORUBICIN [Suspect]
     Indication: NEOPLASM MALIGNANT
     Dosage: date of last dose prior to sae: 25/Jul/2012
     Route: 042
     Dates: start: 20120724
  7. DOXORUBICIN [Suspect]
     Route: 042
     Dates: start: 20120926
  8. DACTINOMYCIN [Suspect]
     Indication: NEOPLASM MALIGNANT
     Dosage: 7th cycle, date of last dose prior to sae: 25/Jul/2012
     Route: 042
     Dates: start: 20120724
  9. DACTINOMYCIN [Suspect]
     Route: 042
     Dates: start: 20120926
  10. DACTINOMYCIN [Suspect]
     Dosage: last dose prior to sae on 17/Oct/2012
     Route: 042
     Dates: start: 20121017
  11. DACTINOMYCIN [Suspect]
     Dosage: last dose prior to SAE on 27/Nov/2012
     Route: 042
     Dates: start: 20121127
  12. VINCRISTIN [Suspect]
     Indication: NEOPLASM MALIGNANT
     Dosage: 7th cycle, last dose prior to SAE on 27/Nov/2012
     Route: 042
     Dates: start: 20121127
  13. CAPHOSOL [Concomitant]
     Dosage: 4 vial
     Route: 065
     Dates: start: 20121019
  14. LACTULOSUM [Concomitant]
     Route: 065

REACTIONS (5)
  - Mucosal inflammation [Recovered/Resolved]
  - Febrile neutropenia [Recovered/Resolved]
  - Febrile neutropenia [Recovered/Resolved]
  - Hypophagia [Recovered/Resolved]
  - Febrile neutropenia [Unknown]
